FAERS Safety Report 8451102-4 (Version None)
Quarter: 2012Q2

REPORT INFORMATION
  Report Type: 
  Country: None (occurrence: None)
  Receive Date: 20120620
  Receipt Date: 20120523
  Transmission Date: 20120825
  Serious: No
  Sender: FDA-Public Use
  Company Number: US-BAYER-2012-052849

PATIENT

DRUGS (2)
  1. EXTRA STRENGTH TYLENOL [Concomitant]
     Dosage: 1 DF, ONCE
     Route: 048
     Dates: start: 20120523, end: 20120523
  2. ALEVE (CAPLET) [Suspect]
     Indication: PRODUCT USED FOR UNKNOWN INDICATION
     Dosage: 1 DF, UNK
     Route: 048
     Dates: start: 20120523, end: 20120523

REACTIONS (1)
  - DRUG INEFFECTIVE [None]
